FAERS Safety Report 14067065 (Version 3)
Quarter: 2024Q4

REPORT INFORMATION
  Report Type: Spontaneous
  Country: US (occurrence: US)
  Receive Date: 20171009
  Receipt Date: 20241209
  Transmission Date: 20250114
  Serious: Yes (Hospitalization, Other)
  Sender: SANOFI AVENTIS
  Company Number: US-SA-2017SA185610

PATIENT
  Age: 83 Year
  Sex: Female

DRUGS (2)
  1. SULFAMETHOXAZOLE\TRIMETHOPRIM [Suspect]
     Active Substance: SULFAMETHOXAZOLE\TRIMETHOPRIM
     Indication: Catheter site infection
     Dosage: 960 MG,BID, (800 MG-160 MG)
     Route: 048
     Dates: start: 20150224, end: 20150303
  2. ENOXAPARIN SODIUM [Suspect]
     Active Substance: ENOXAPARIN SODIUM
     Dosage: UNK
     Route: 065

REACTIONS (12)
  - Anti-neutrophil cytoplasmic antibody positive vasculitis [Recovering/Resolving]
  - Antineutrophil cytoplasmic antibody positive [Recovering/Resolving]
  - Macule [Recovering/Resolving]
  - Papule [Recovering/Resolving]
  - Pruritus [Recovering/Resolving]
  - Purpura [Recovering/Resolving]
  - Haemorrhage [Recovering/Resolving]
  - Pain [Recovering/Resolving]
  - Petechiae [Recovering/Resolving]
  - Blister [Recovering/Resolving]
  - Skin erosion [Recovering/Resolving]
  - Heparin-induced thrombocytopenia [Unknown]

NARRATIVE: CASE EVENT DATE: 20150226
